FAERS Safety Report 5762550-5 (Version None)
Quarter: 2008Q2

REPORT INFORMATION
  Report Type: 
  Country: None (occurrence: None)
  Receive Date: 20080609
  Receipt Date: 20080603
  Transmission Date: 20081010
  Serious: Yes (Hospitalization)
  Sender: FDA-Public Use
  Company Number: B0521188A

PATIENT
  Age: 84 Year
  Sex: Male

DRUGS (5)
  1. ARIXTRA [Suspect]
     Indication: THROMBOSIS PROPHYLAXIS
     Dosage: 1.5MG PER DAY
     Route: 058
     Dates: start: 20080310, end: 20080316
  2. LOXOPROFEN [Concomitant]
     Indication: ANALGESIA
     Dosage: 180MG PER DAY
     Route: 048
  3. MUCOSTA [Concomitant]
     Indication: GASTRITIS PROPHYLAXIS
     Dosage: 300MG PER DAY
     Route: 048
  4. ZOPICOOL [Concomitant]
     Indication: INSOMNIA
     Dosage: 7.5MG PER DAY
     Route: 048
  5. ANHIBA [Concomitant]
     Indication: ANALGESIA
     Dosage: 400MG PER DAY
     Route: 054

REACTIONS (8)
  - ANOREXIA [None]
  - ARTHRALGIA [None]
  - BLOOD PRESSURE DECREASED [None]
  - CONSTIPATION [None]
  - HYPONATRAEMIA [None]
  - INTESTINAL OBSTRUCTION [None]
  - LOCAL SWELLING [None]
  - POST PROCEDURAL HAEMORRHAGE [None]
